FAERS Safety Report 7701606-4 (Version None)
Quarter: 2011Q3

REPORT INFORMATION
  Report Type: 
  Country: None (occurrence: None)
  Receive Date: 20110822
  Receipt Date: 20110816
  Transmission Date: 20111222
  Serious: Yes (Other)
  Sender: FDA-Public Use
  Company Number: US-PFIZER INC-2011189133

PATIENT
  Sex: Male
  Weight: 14.512 kg

DRUGS (2)
  1. XYNTHA [Suspect]
     Indication: HAEMOPHILIA
     Dosage: 40 IU/KG, WEEKLY
     Dates: start: 20110608, end: 20110804
  2. XYNTHA [Suspect]
     Dosage: 50 IU/KG, EACH DAY
     Dates: start: 20110808, end: 20110810

REACTIONS (3)
  - LIMB INJURY [None]
  - FACTOR VIII INHIBITION [None]
  - OEDEMA PERIPHERAL [None]
